FAERS Safety Report 5244626-4 (Version None)
Quarter: 2007Q1

REPORT INFORMATION
  Report Type: 
  Country: None (occurrence: None)
  Receive Date: 20070222
  Receipt Date: 20070208
  Transmission Date: 20070707
  Serious: Yes (Hospitalization, Other)
  Sender: FDA-Public Use
  Company Number: BR-SHR-BR-2007-005230

PATIENT
  Age: 58 Year
  Sex: Female

DRUGS (4)
  1. BETASERON [Suspect]
     Dosage: 8 MIU, EVERY 2D
     Route: 058
     Dates: start: 19920101, end: 20060101
  2. SERTRALINE [Concomitant]
     Dosage: 1 TAB(S), 1X/DAY
     Route: 048
     Dates: start: 20020101
  3. TYLENOL [Concomitant]
     Dosage: 1 TAB(S), AS REQ'D
     Route: 048
  4. FERRATRATI [Concomitant]

REACTIONS (2)
  - FALL [None]
  - OVARIAN CANCER [None]
